FAERS Safety Report 11279760 (Version 1)
Quarter: 2015Q3

REPORT INFORMATION
  Report Type: Spontaneous
  Country: US (occurrence: None)
  Receive Date: 20150716
  Receipt Date: 20150716
  Transmission Date: 20151125
  Serious: No
  Sender: FDA-Public Use
  Company Number: None

PATIENT
  Age: 55 Year
  Sex: Female
  Weight: 74.84 kg

DRUGS (12)
  1. ADDERALL GENERIC 20 MG MALLINCKRODT PHARMACEUTICAL [Suspect]
     Active Substance: AMPHETAMINE ASPARTATE\AMPHETAMINE SULFATE\DEXTROAMPHETAMINE SACCHARATE\DEXTROAMPHETAMINE SULFATE
     Indication: ATTENTION DEFICIT/HYPERACTIVITY DISORDER
     Route: 048
     Dates: start: 20150701, end: 20150714
  2. EPO [Concomitant]
     Active Substance: ERYTHROPOIETIN
  3. VITAMIN D3 [Concomitant]
     Active Substance: CHOLECALCIFEROL
  4. TUMERIC [Concomitant]
  5. SOTTOPELLE HORMONE REPLACEMENT INJECTION [Concomitant]
  6. SELENIUM [Concomitant]
     Active Substance: SELENIUM
  7. VITAMIN C [Concomitant]
     Active Substance: ASCORBIC ACID
  8. T3/T4 COMPOUNDED [Concomitant]
  9. EFO [Concomitant]
  10. PROGESTERONE. [Concomitant]
     Active Substance: PROGESTERONE
  11. SPIRONOLACTONE. [Concomitant]
     Active Substance: SPIRONOLACTONE
  12. BIOTIN [Concomitant]
     Active Substance: BIOTIN

REACTIONS (6)
  - Fatigue [None]
  - Disturbance in attention [None]
  - Drug ineffective [None]
  - Product quality issue [None]
  - Abdominal discomfort [None]
  - Product substitution issue [None]

NARRATIVE: CASE EVENT DATE: 20150701
